FAERS Safety Report 16133221 (Version 4)
Quarter: 2019Q2

REPORT INFORMATION
  Report Type: Spontaneous
  Country: GB (occurrence: GB)
  Receive Date: 20190329
  Receipt Date: 20190502
  Transmission Date: 20190711
  Serious: Yes (Death, Hospitalization)
  Sender: FDA-Public Use
  Company Number: GB-TEVA-2019-GB-1013365

PATIENT
  Age: 60 Year
  Sex: Male
  Weight: 70 kg

DRUGS (15)
  1. MELATONIN [Concomitant]
     Active Substance: MELATONIN
     Indication: CIRCADIAN RHYTHM SLEEP DISORDER
     Dosage: 2MG/5ML ONCE NIGHTLY, JEJUNOSTOMY TUBE
     Route: 065
     Dates: start: 20160921
  2. BISOPROLOL [Concomitant]
     Active Substance: BISOPROLOL
     Dosage: 7.5 MILLIGRAM DAILY;
     Route: 065
  3. LANSOPRAZOLE. [Concomitant]
     Active Substance: LANSOPRAZOLE
     Indication: PROPHYLAXIS AGAINST GASTROINTESTINAL ULCER
     Dosage: 30 MILLIGRAM DAILY; JEJUNOSTOMY TUBE
     Route: 065
     Dates: start: 201611
  4. BISOPROLOL [Concomitant]
     Active Substance: BISOPROLOL
     Indication: PROPHYLAXIS
     Dosage: 1.25 MILLIGRAM DAILY; JEJUNOSTOMY TUBE
     Route: 065
  5. BISOPROLOL [Concomitant]
     Active Substance: BISOPROLOL
     Dosage: 5 MILLIGRAM DAILY;
     Route: 065
     Dates: start: 20161010
  6. HYPROMELLOSE [Concomitant]
     Active Substance: HYPROMELLOSES
     Indication: DRY EYE
     Dosage: 2 DOSAGE FORMS DAILY; 1 DOSAGE FORM=ONE DROP
     Route: 031
     Dates: start: 201611
  7. PHENOXYMETHYLPENICILIN [Concomitant]
     Indication: SPLENECTOMY
     Dosage: 250MG/5ML, JEJUNOSTOMY TUBE
     Route: 065
     Dates: start: 200004
  8. ATORVASTATIN [Concomitant]
     Active Substance: ATORVASTATIN
     Indication: PROPHYLAXIS
     Dosage: 40 MILLIGRAM DAILY; JEJUNOSTOMY TUBE
     Route: 065
  9. BISOPROLOL [Concomitant]
     Active Substance: BISOPROLOL
     Dosage: 1.5 MILLIGRAM DAILY;
     Route: 065
     Dates: start: 20180727, end: 20180820
  10. CARBOCISTEINE [Concomitant]
     Active Substance: CARBOCYSTEINE
     Indication: CHEST DISCOMFORT
     Dosage: 25MG/5ML, JEJUNOSTOMY TUBE
     Route: 065
     Dates: start: 20180727, end: 20180820
  11. COLECALCIFEROL [Concomitant]
     Active Substance: CHOLECALCIFEROL
     Indication: SUPPLEMENTATION THERAPY
     Dosage: 800 IU (INTERNATIONAL UNIT) DAILY; 200 UNITS/DROP, JEJUNOSTOMY TUBE
     Route: 065
  12. SPIRONOLACTONE. [Concomitant]
     Active Substance: SPIRONOLACTONE
     Indication: CARDIAC FAILURE
     Dosage: 25 MILLIGRAM DAILY; JEJUNOSTOMY TUBE
     Route: 065
     Dates: start: 20180727, end: 20180820
  13. AMANTADINE. [Suspect]
     Active Substance: AMANTADINE HYDROCHLORIDE
     Indication: NERVOUS SYSTEM DISORDER
     Dosage: 100 MILLIGRAM DAILY;
  14. AMANTADINE. [Suspect]
     Active Substance: AMANTADINE HYDROCHLORIDE
     Dosage: 200 MILLIGRAM DAILY;
     Dates: start: 20180515
  15. ASPIRIN. [Concomitant]
     Active Substance: ASPIRIN
     Indication: PROPHYLAXIS
     Dosage: 75 MILLIGRAM DAILY; JEJUNOSTOMY TUBE
     Route: 065

REACTIONS (14)
  - Breath sounds abnormal [Unknown]
  - Hypotension [Unknown]
  - Respiratory rate decreased [Unknown]
  - Bronchial secretion retention [Unknown]
  - Pupil fixed [Unknown]
  - Chest expansion decreased [Recovered/Resolved]
  - Toxicity to various agents [Fatal]
  - Oxygen saturation decreased [Unknown]
  - Motor dysfunction [Unknown]
  - Apnoea [Unknown]
  - Agitation [Unknown]
  - Pulse absent [Unknown]
  - Hyperhidrosis [Unknown]
  - Pallor [Unknown]

NARRATIVE: CASE EVENT DATE: 20180924
